FAERS Safety Report 14218929 (Version 3)
Quarter: 2020Q1

REPORT INFORMATION
  Report Type: Spontaneous
  Country: US (occurrence: US)
  Receive Date: 20171123
  Receipt Date: 20200110
  Transmission Date: 20200409
  Serious: No
  Sender: FDA-Public Use
  Company Number: US-JNJFOC-20171011252

PATIENT
  Sex: Male

DRUGS (3)
  1. RISPERDAL [Suspect]
     Active Substance: RISPERIDONE
     Indication: PSYCHOTIC DISORDER
     Route: 048
     Dates: start: 20120428, end: 20121116
  2. RISPERDAL [Suspect]
     Active Substance: RISPERIDONE
     Indication: MENTAL DISORDER
     Dosage: 0.25, 0.5, 1, 1.5 AND 2 MG
     Route: 048
     Dates: start: 20120420, end: 20120427
  3. RISPERDAL [Suspect]
     Active Substance: RISPERIDONE
     Dosage: 0.25, 0.5, 1, 1.5 AND 2 MG
     Route: 048
     Dates: start: 20130111, end: 20130716

REACTIONS (2)
  - Emotional distress [Unknown]
  - Gynaecomastia [Unknown]
